FAERS Safety Report 4296356-3 (Version None)
Quarter: 2004Q1

REPORT INFORMATION
  Report Type: 
  Country: None (occurrence: None)
  Receive Date: 20040212
  Receipt Date: 20040128
  Transmission Date: 20041129
  Serious: Yes (Hospitalization)
  Sender: FDA-Public Use
  Company Number: FR-SHR-04-020889

PATIENT
  Age: 56 Year
  Sex: Female

DRUGS (9)
  1. SOTALOL HCL [Suspect]
     Dosage: 80 MG BID, ORAL
     Route: 048
     Dates: start: 20001218
  2. AUGMENTIN [Suspect]
     Indication: BRONCHOPULMONARY ASPERGILLOSIS
     Dosage: 1 G TID, INTRAVENOUS
     Route: 042
     Dates: start: 20031202
  3. FRAXIPARINE (HEPARIN-FRACTION, CALCIUM SALT) SOLUTION [Suspect]
     Indication: IMMOBILIZATION PROLONGED
     Dosage: 0.3 MG/D, SUBCUTANEOUS
     Route: 058
     Dates: end: 20031201
  4. CIPROFLOXACIN [Suspect]
     Indication: BRONCHOPULMONARY ASPERGILLOSIS
     Dosage: 200 MG BID, ORAL
     Route: 048
     Dates: start: 20031202
  5. VFEND [Suspect]
     Indication: BRONCHOPULMONARY ASPERGILLOSIS
     Dosage: 200 MG BID, ORAL
     Route: 048
     Dates: start: 20031206
  6. LEXOMIL (BROMAZEPAM) [Concomitant]
  7. VIOXX [Concomitant]
  8. FOSAMAX [Concomitant]
  9. CLONAZEPAM [Concomitant]

REACTIONS (3)
  - BRONCHOPULMONARY ASPERGILLOSIS [None]
  - HYPERKALAEMIA [None]
  - SUPERINFECTION LUNG [None]
